FAERS Safety Report 6568607-3 (Version None)
Quarter: 2010Q1

REPORT INFORMATION
  Report Type: 
  Country: None (occurrence: None)
  Receive Date: 20100203
  Receipt Date: 20100125
  Transmission Date: 20100710
  Serious: Yes (Hospitalization, Disabling, Other)
  Sender: FDA-Public Use
  Company Number: US-MERCK-0910USA01555

PATIENT
  Age: 67 Year
  Sex: Female
  Weight: 55 kg

DRUGS (16)
  1. FOSAMAX [Suspect]
     Indication: OSTEOPOROSIS
     Dosage: A.M
     Route: 048
     Dates: start: 20020101, end: 20090601
  2. ALENDRONATE SODIUM [Suspect]
     Route: 048
     Dates: start: 20090101, end: 20090701
  3. CALCIUM (UNSPECIFIED) AND VITAMIN D (UNSPECIFIED) [Concomitant]
     Route: 048
  4. ELAVIL [Concomitant]
     Route: 048
  5. LOTENSIN HCT [Concomitant]
     Route: 048
  6. VITAMINS (UNSPECIFIED) [Concomitant]
     Route: 048
  7. ASPIRIN [Concomitant]
     Route: 065
  8. ZOCOR [Concomitant]
     Route: 048
  9. OMEGA-3 MARINE TRIGLYCERIDES [Concomitant]
     Route: 065
  10. NIACIN [Concomitant]
     Route: 048
  11. CYANOCOBALAMIN [Concomitant]
     Route: 065
  12. DILAUDID [Concomitant]
     Route: 065
  13. VAGIFEM [Concomitant]
     Route: 067
  14. PREMARIN [Concomitant]
     Dosage: 1.2 APPLICATOR VAGINALLY
     Route: 067
  15. LEVOTHYROXINE SODIUM [Concomitant]
     Route: 065
  16. CHONDROITIN SULFATE SODIUM AND GLUCOSAMINE SULFATE [Concomitant]
     Route: 048

REACTIONS (8)
  - ABDOMINAL DISCOMFORT [None]
  - ANXIETY [None]
  - ARTHRALGIA [None]
  - DIARRHOEA [None]
  - FALL [None]
  - FEMUR FRACTURE [None]
  - NAUSEA [None]
  - PAIN IN EXTREMITY [None]
